FAERS Safety Report 5416523-2 (Version None)
Quarter: 2007Q3

REPORT INFORMATION
  Report Type: 
  Country: None (occurrence: None)
  Receive Date: 20070814
  Receipt Date: 20070802
  Transmission Date: 20080115
  Serious: Yes (Hospitalization, Other)
  Sender: FDA-Public Use
  Company Number: 2007VX001814

PATIENT
  Age: 73 Year
  Sex: Male

DRUGS (8)
  1. PERMAX [Suspect]
     Indication: PARKINSON'S DISEASE
     Dosage: 1000 UG; ; PO
     Route: 048
     Dates: start: 20020404, end: 20070625
  2. BROMOCRIPTINE MESYLATE [Concomitant]
  3. NEO DOPASTON [Concomitant]
  4. SELEGILINE HYDROCHLORIDE [Concomitant]
  5. DEPAS [Concomitant]
  6. PURSENNID [Concomitant]
  7. LAXOBERON [Concomitant]
  8. MAGNESIUM OXIDE [Concomitant]

REACTIONS (2)
  - ASCITES [None]
  - COLON OPERATION [None]
